FAERS Safety Report 9143108 (Version 1)
Quarter: 2013Q1

REPORT INFORMATION
  Report Type: Spontaneous
  Country: US (occurrence: US)
  Receive Date: 20130306
  Receipt Date: 20130306
  Transmission Date: 20140127
  Serious: Yes (Other)
  Sender: FDA-Public Use
  Company Number: US-PFIZER INC-2013074811

PATIENT
  Sex: Female
  Weight: 78.46 kg

DRUGS (8)
  1. VERAPAMIL HCL [Suspect]
     Indication: HYPERTENSION
     Dosage: 240 MG, UNK
  2. VERAPAMIL HCL [Suspect]
     Indication: PROPHYLAXIS
  3. KADIAN [Concomitant]
     Indication: PAIN
     Dosage: 50 MG, 2X/DAY
  4. ATIVAN [Concomitant]
     Indication: ANXIETY
     Dosage: 1 MG, 2X/DAY
  5. VYVANSE [Concomitant]
     Indication: DEPRESSION
     Dosage: 70 MG, UNK
  6. WELLBUTRIN [Concomitant]
     Indication: DEPRESSION
     Dosage: 450 MG, UNK
  7. HYZAAR [Concomitant]
     Indication: HYPERTENSION
     Dosage: 100/12.5 MG, UNK
  8. SYNTHROID [Concomitant]
     Indication: HYPOTHYROIDISM
     Dosage: 88 UG, UNK

REACTIONS (1)
  - Intervertebral disc protrusion [Unknown]
